FAERS Safety Report 8046599-8 (Version None)
Quarter: 2012Q1

REPORT INFORMATION
  Report Type: 
  Country: None (occurrence: None)
  Receive Date: 20120113
  Receipt Date: 20120110
  Transmission Date: 20120608
  Serious: Yes (Death)
  Sender: FDA-Public Use
  Company Number: TN-SANOFI-AVENTIS-2012SA002091

PATIENT
  Age: 50 Year
  Sex: Male

DRUGS (8)
  1. PLAVIX [Suspect]
     Route: 048
     Dates: start: 20110302, end: 20120105
  2. ASPEGIC 325 [Concomitant]
     Route: 048
     Dates: end: 20120105
  3. PERINDOPRIL [Concomitant]
     Route: 048
     Dates: end: 20120105
  4. PLAVIX [Suspect]
     Indication: ACUTE CORONARY SYNDROME
     Route: 048
     Dates: start: 20110302, end: 20120105
  5. GLYBURIDE [Concomitant]
     Route: 048
     Dates: end: 20120105
  6. FORMIDIAB [Concomitant]
     Route: 048
     Dates: end: 20120105
  7. ATORVASTATIN [Concomitant]
     Route: 048
     Dates: end: 20120105
  8. HYPOTEN [Concomitant]
     Route: 048
     Dates: end: 20120105

REACTIONS (2)
  - CARDIAC FAILURE [None]
  - DYSPNOEA [None]
